FAERS Safety Report 8069256-0 (Version None)
Quarter: 2012Q1

REPORT INFORMATION
  Report Type: 
  Country: None (occurrence: None)
  Receive Date: 20120125
  Receipt Date: 20120116
  Transmission Date: 20120608
  Serious: Yes (Other)
  Sender: FDA-Public Use
  Company Number: DE-JNJFOC-20110808007

PATIENT
  Age: 56 Year
  Sex: Female

DRUGS (7)
  1. LEVOTHYROXINE SODIUM [Concomitant]
  2. LEFLUNOMIDE [Suspect]
     Indication: PRODUCT USED FOR UNKNOWN INDICATION
     Dates: start: 20090601
  3. PREDNISOLONE [Concomitant]
  4. PANTOPRAZOLE [Concomitant]
  5. GOLIMUMAB [Suspect]
     Indication: RHEUMATOID ARTHRITIS
     Route: 058
     Dates: start: 20100601, end: 20110531
  6. CALCIUM AND VITAMIN D3 [Concomitant]
     Dosage: 1000 MG/800 IE
  7. SIMVASTATIN [Concomitant]

REACTIONS (3)
  - CONVULSION [None]
  - DIAGNOSTIC PROCEDURE [None]
  - ENCEPHALITIS VIRAL [None]
